FAERS Safety Report 6021707-9 (Version None)
Quarter: 2008Q4

REPORT INFORMATION
  Report Type: 
  Country: None (occurrence: None)
  Receive Date: 20081229
  Receipt Date: 20081219
  Transmission Date: 20090506
  Serious: Yes (Other)
  Sender: FDA-Public Use
  Company Number: GB-MERCK-0812GBR00090

PATIENT
  Age: 76 Year
  Sex: Male

DRUGS (4)
  1. ZOCOR [Suspect]
     Route: 048
  2. BENDROFLUMETHIAZIDE [Suspect]
     Route: 065
  3. NICORANDIL [Suspect]
     Route: 065
  4. METFORMIN HYDROCHLORIDE AND ROSIGLITAZONE MALEATE [Suspect]
     Indication: TYPE 2 DIABETES MELLITUS
     Route: 065

REACTIONS (1)
  - DIABETES MELLITUS INADEQUATE CONTROL [None]
